FAERS Safety Report 15181871 (Version 2)
Quarter: 2020Q2

REPORT INFORMATION
  Report Type: Spontaneous
  Country: RU (occurrence: RU)
  Receive Date: 20180723
  Receipt Date: 20200520
  Transmission Date: 20200713
  Serious: Yes (Other)
  Sender: FDA-Public Use
  Company Number: RU-SA-2018SA195472

PATIENT

DRUGS (3)
  1. THYMOGLOBULIN [Suspect]
     Active Substance: LAPINE T-LYMPHOCYTE IMMUNE GLOBULIN
     Indication: HAEMATOLOGICAL MALIGNANCY
     Dosage: 6.4 MG / M2 / 150 MG / M2 / 5 MG / M2
  2. MYLERAN [Suspect]
     Active Substance: BUSULFAN
     Indication: HAEMATOLOGICAL MALIGNANCY
     Dosage: 6.4 MG / M2 / 150 MG / M2 / 5 MG / M2
     Route: 042
  3. FLUDARABINE PHOSPHATE. [Suspect]
     Active Substance: FLUDARABINE PHOSPHATE
     Dosage: 6.4 MG / M2 / 150 MG / M2 / 5 MG / M2

REACTIONS (2)
  - Disease progression [Unknown]
  - Neoplasm malignant [Unknown]
